FAERS Safety Report 6472215-2 (Version None)
Quarter: 2009Q4

REPORT INFORMATION
  Report Type: 
  Country: None (occurrence: None)
  Receive Date: 20091203
  Receipt Date: 20081229
  Transmission Date: 20100525
  Serious: No
  Sender: FDA-Public Use
  Company Number: US-AMGEN-KDL322097

PATIENT
  Sex: Male
  Weight: 86.3 kg

DRUGS (3)
  1. ENBREL [Suspect]
     Indication: PSORIASIS
     Route: 058
     Dates: start: 20081108
  2. WELLBUTRIN [Concomitant]
  3. PRILOSEC [Concomitant]

REACTIONS (1)
  - NECK MASS [None]
